FAERS Safety Report 10234048 (Version 2)
Quarter: 2014Q2

REPORT INFORMATION
  Report Type: Spontaneous
  Country: CA (occurrence: CA)
  Receive Date: 20140612
  Receipt Date: 20140612
  Transmission Date: 20141212
  Serious: Yes (Other)
  Sender: FDA-Public Use
  Company Number: CA-BAXTER-2014BAX028622

PATIENT
  Age: 70 Year
  Sex: Male

DRUGS (3)
  1. DIANEAL PD4 SOLUTION WITH 1.5% DEXTROSE AND 2.5 MEQ/L CALCIUM [Suspect]
     Indication: PERITONEAL DIALYSIS
     Route: 033
     Dates: start: 201112
  2. DIANEAL PD4 SOLUTION WITH 2.5% DEXTROSE AND 2.5 MEQ/L CALCIUM [Suspect]
     Indication: PERITONEAL DIALYSIS
     Route: 033
     Dates: start: 201112
  3. EXTRANEAL [Suspect]
     Indication: PERITONEAL DIALYSIS
     Route: 033
     Dates: start: 201112

REACTIONS (6)
  - Renal failure [Unknown]
  - Atonic urinary bladder [Unknown]
  - Peritonitis [Unknown]
  - Peritoneal cloudy effluent [Recovered/Resolved]
  - Peritoneal dialysis complication [Unknown]
  - Nosocomial infection [Unknown]
